FAERS Safety Report 8550979-1 (Version None)
Quarter: 2012Q3

REPORT INFORMATION
  Report Type: 
  Country: None (occurrence: None)
  Receive Date: 20120730
  Receipt Date: 20111007
  Transmission Date: 20120928
  Serious: No
  Sender: FDA-Public Use
  Company Number: US-ALLERGAN-1113290US

PATIENT
  Age: 93 Year
  Sex: Female

DRUGS (2)
  1. LUMIGAN [Suspect]
     Indication: GLAUCOMA
     Dosage: 1 GTT, QHS
  2. PROPYLENE GLYCOL [Concomitant]
     Indication: DRY EYE

REACTIONS (1)
  - MYDRIASIS [None]
